FAERS Safety Report 7491313-8 (Version None)
Quarter: 2011Q2

REPORT INFORMATION
  Report Type: 
  Country: None (occurrence: None)
  Receive Date: 20110519
  Receipt Date: 20110512
  Transmission Date: 20111010
  Serious: Yes (Other)
  Sender: FDA-Public Use
  Company Number: B0719391A

PATIENT
  Sex: Female

DRUGS (2)
  1. PAXIL [Suspect]
     Dosage: 15MG PER DAY
     Route: 048
     Dates: start: 20110421
  2. PAXIL [Suspect]
     Indication: DEPRESSION
     Dosage: 5MG PER DAY
     Route: 048
     Dates: start: 20110414, end: 20110420

REACTIONS (3)
  - CATARACT [None]
  - PRESBYOPIA [None]
  - HYPERAEMIA [None]
